FAERS Safety Report 21195182 (Version 1)
Quarter: 2022Q3

REPORT INFORMATION
  Report Type: Report from Study
  Country: DO (occurrence: DO)
  Receive Date: 20220810
  Receipt Date: 20220810
  Transmission Date: 20221026
  Serious: Yes (Other)
  Sender: FDA-Public Use
  Company Number: DO-Merck Healthcare KGaA-9341140

PATIENT
  Age: 69 Year
  Sex: Male

DRUGS (1)
  1. CETUXIMAB [Suspect]
     Active Substance: CETUXIMAB
     Indication: Product used for unknown indication
     Dosage: UNK UNK, WEEKLY (1/W)
     Route: 065
     Dates: start: 20210601

REACTIONS (3)
  - Malignant neoplasm progression [Unknown]
  - Decreased appetite [Unknown]
  - Asthenia [Unknown]
